FAERS Safety Report 14644187 (Version 15)
Quarter: 2019Q1

REPORT INFORMATION
  Report Type: Report from Study
  Country: US (occurrence: US)
  Receive Date: 20180315
  Receipt Date: 20190314
  Transmission Date: 20190417
  Serious: Yes (Hospitalization, Other)
  Sender: FDA-Public Use
  Company Number: US-ACTELION-A-NJ2018-169050

PATIENT
  Age: 53 Year
  Sex: Female
  Weight: 77.1 kg

DRUGS (8)
  1. VELETRI [Suspect]
     Active Substance: EPOPROSTENOL
     Indication: PULMONARY HYPERTENSION
     Dosage: 16 NG/KG, PER MIN
     Route: 042
  2. VELETRI [Suspect]
     Active Substance: EPOPROSTENOL
     Dosage: 24 NG/KG, PER MIN
     Route: 042
  3. VELETRI [Suspect]
     Active Substance: EPOPROSTENOL
     Dosage: 12 NG/KG, PER MIN
     Route: 042
  4. VELETRI [Suspect]
     Active Substance: EPOPROSTENOL
     Dosage: 6 NG/KG, PER MIN
     Route: 042
  5. COUMADIN [Concomitant]
     Active Substance: WARFARIN SODIUM
  6. WARFARIN [Concomitant]
     Active Substance: WARFARIN
  7. VELETRI [Suspect]
     Active Substance: EPOPROSTENOL
     Dosage: 18 NG/KG, PER MIN
     Route: 042
  8. SILDENAFIL. [Concomitant]
     Active Substance: SILDENAFIL

REACTIONS (32)
  - Gastrointestinal disorder [Unknown]
  - Memory impairment [Unknown]
  - Laboratory test abnormal [Unknown]
  - Ascites [Unknown]
  - Catheter site erythema [Recovering/Resolving]
  - Right ventricular failure [Unknown]
  - Blood potassium decreased [Unknown]
  - Muscular weakness [Unknown]
  - Liver disorder [Unknown]
  - Diarrhoea [Unknown]
  - Feeling abnormal [Not Recovered/Not Resolved]
  - Pulmonary arterial pressure increased [Unknown]
  - Catheter placement [Unknown]
  - Localised oedema [Unknown]
  - Heparin-induced thrombocytopenia [Unknown]
  - Weight decreased [Unknown]
  - Pallor [Unknown]
  - Dyspnoea [Unknown]
  - Oedema peripheral [Unknown]
  - Ammonia increased [Unknown]
  - Weight increased [Unknown]
  - Fluid retention [Unknown]
  - Right ventricular enlargement [Unknown]
  - Hospice care [Unknown]
  - Skin disorder [Unknown]
  - Nausea [Not Recovered/Not Resolved]
  - Vomiting [Not Recovered/Not Resolved]
  - Hepatic failure [Unknown]
  - Terminal state [Unknown]
  - Pain in jaw [Not Recovered/Not Resolved]
  - Headache [Unknown]
  - Fatigue [Unknown]

NARRATIVE: CASE EVENT DATE: 20180315
